FAERS Safety Report 26009942 (Version 1)
Quarter: 2025Q4

REPORT INFORMATION
  Report Type: Spontaneous
  Country: CN (occurrence: CN)
  Receive Date: 20251107
  Receipt Date: 20251107
  Transmission Date: 20260117
  Serious: Yes (Other)
  Sender: DR REDDYS
  Company Number: None

PATIENT
  Age: 58 Year
  Sex: Female
  Weight: 83 kg

DRUGS (2)
  1. OLANZAPINE [Suspect]
     Active Substance: OLANZAPINE
     Indication: Psychotic disorder
     Dosage: 10MG,BID
     Route: 048
     Dates: start: 20250525, end: 20251029
  2. Nifedipine Sustained-release Tablets (I) [Concomitant]
     Indication: Hypertension
     Dosage: 10.000000MG,TID
     Route: 048
     Dates: start: 20250524, end: 20251029

REACTIONS (1)
  - Sedation complication [Recovered/Resolved]

NARRATIVE: CASE EVENT DATE: 20250905
